FAERS Safety Report 5026187-8 (Version None)
Quarter: 2006Q2

REPORT INFORMATION
  Report Type: 
  Country: None (occurrence: None)
  Receive Date: 20060608
  Receipt Date: 20060524
  Transmission Date: 20061013
  Serious: No
  Sender: FDA-Public Use
  Company Number: 0206021

PATIENT
  Age: 62 Year
  Sex: Female
  Weight: 97 kg

DRUGS (1)
  1. DEPODUR [Suspect]
     Indication: POSTOPERATIVE ANALGESIA
     Dosage: 10 MG (10 MG, ONCE), INTRATHECAL
     Route: 037
     Dates: start: 20060517, end: 20060517

REACTIONS (3)
  - INCORRECT ROUTE OF DRUG ADMINISTRATION [None]
  - MEDICATION ERROR [None]
  - RESPIRATORY DEPRESSION [None]
